FAERS Safety Report 10085030 (Version 1)
Quarter: 2014Q2

REPORT INFORMATION
  Report Type: Report from Study
  Country: DE (occurrence: DE)
  Receive Date: 20140417
  Receipt Date: 20140417
  Transmission Date: 20141212
  Serious: Yes (Other)
  Sender: FDA-Public Use
  Company Number: DE-PFIZER INC-2014104500

PATIENT
  Age: 63 Year
  Sex: Female
  Weight: 83 kg

DRUGS (16)
  1. EXEMESTANE [Suspect]
     Indication: BREAST CANCER
     Dosage: 25 MG, DAILY
     Route: 048
     Dates: start: 20130708, end: 20130723
  2. EXEMESTANE [Suspect]
     Dosage: 25 MG, DAILY
     Route: 048
     Dates: start: 20130801, end: 20130806
  3. EXEMESTANE [Suspect]
     Dosage: 25 MG, DAILY
     Route: 048
     Dates: start: 20130809, end: 20130809
  4. EXEMESTANE [Suspect]
     Dosage: 25 MG, DAILY
     Route: 048
     Dates: start: 20130813, end: 20130917
  5. EXEMESTANE [Suspect]
     Dosage: 25 MG, DAILY
     Route: 048
     Dates: start: 20130919, end: 20131004
  6. EXEMESTANE [Suspect]
     Dosage: 25 MG, DAILY
     Route: 048
     Dates: start: 20131006, end: 20131106
  7. EXEMESTANE [Suspect]
     Dosage: 25 MG, DAILY
     Route: 048
     Dates: start: 20131109, end: 20131217
  8. EXEMESTANE [Suspect]
     Dosage: 25 MG, DAILY
     Route: 048
     Dates: start: 20131219, end: 20131229
  9. EXEMESTANE [Suspect]
     Dosage: 25 MG, DAILY
     Route: 048
     Dates: start: 20140101
  10. AFINITOR [Suspect]
     Indication: BREAST CANCER
     Dosage: 10 MG, DAILY
     Route: 048
     Dates: start: 20130708, end: 20130723
  11. AFINITOR [Suspect]
     Dosage: 5 MG, DAILY
     Route: 048
     Dates: start: 20130826, end: 20130917
  12. AFINITOR [Suspect]
     Dosage: 5 MG, DAILY
     Route: 048
     Dates: start: 20130919, end: 20131004
  13. AFINITOR [Suspect]
     Dosage: 5 MG, DAILY
     Route: 048
     Dates: start: 20131006, end: 20131106
  14. AFINITOR [Suspect]
     Dosage: 5 MG, DAILY
     Route: 048
     Dates: start: 20131109, end: 20131217
  15. AFINITOR [Suspect]
     Dosage: 5 MG, DAILY
     Route: 048
     Dates: start: 20131219, end: 20131229
  16. AFINITOR [Suspect]
     Dosage: 5 MG, DAILY
     Route: 048
     Dates: start: 20140101

REACTIONS (1)
  - Circulatory collapse [Recovered/Resolved]
